FAERS Safety Report 9040875 (Version 2)
Quarter: 2013Q1

REPORT INFORMATION
  Report Type: Spontaneous
  Country: ES (occurrence: ES)
  Receive Date: 20130129
  Receipt Date: 20130205
  Transmission Date: 20140127
  Serious: Yes (Other)
  Sender: FDA-Public Use
  Company Number: ES-ABBOTT-13P-144-1041932-00

PATIENT
  Age: 48 Year
  Sex: Male

DRUGS (4)
  1. NORVIR [Suspect]
     Indication: HIV INFECTION
  2. BILASTINE [Suspect]
     Indication: SINUSITIS
     Dates: start: 20120114
  3. PREZISTA [Concomitant]
     Indication: HIV INFECTION
  4. EPIVIR [Concomitant]
     Indication: HIV INFECTION

REACTIONS (3)
  - Gallbladder operation [Unknown]
  - Chromaturia [Unknown]
  - Drug interaction [Unknown]
